FAERS Safety Report 17632766 (Version 2)
Quarter: 2020Q3

REPORT INFORMATION
  Report Type: Spontaneous
  Country: US (occurrence: US)
  Receive Date: 20200406
  Receipt Date: 20200724
  Transmission Date: 20201102
  Serious: Yes (Other)
  Sender: FDA-Public Use
  Company Number: US-PFIZER INC-2020141144

PATIENT
  Age: 82 Year
  Sex: Female
  Weight: 110.2 kg

DRUGS (1)
  1. IBRANCE [Suspect]
     Active Substance: PALBOCICLIB
     Indication: BREAST CANCER METASTATIC
     Dosage: 100 MG, CYCLIC; (100MG, TABLET, BY MOUTH, ONCE DAILY FOR 21 DAYS ON, 7 DAYS OFF)
     Route: 048

REACTIONS (2)
  - Cellulitis [Recovering/Resolving]
  - Somnolence [Unknown]

NARRATIVE: CASE EVENT DATE: 202006
